FAERS Safety Report 9795967 (Version 2)
Quarter: 2014Q1

REPORT INFORMATION
  Report Type: Spontaneous
  Country: US (occurrence: US)
  Receive Date: 20140103
  Receipt Date: 20140103
  Transmission Date: 20141002
  Serious: Yes (Death)
  Sender: FDA-Public Use
  Company Number: US-CUBIST PHARMACEUTICAL, INC.-2012S1000430

PATIENT
  Sex: 0

DRUGS (9)
  1. CUBICIN [Suspect]
     Indication: STAPHYLOCOCCAL BACTERAEMIA
     Dosage: 300 MG, Q24H
     Route: 042
     Dates: start: 20090330, end: 20090428
  2. CUBICIN [Suspect]
     Dosage: 5.75 MG/KG, Q24H
     Route: 042
     Dates: start: 20090330, end: 20090428
  3. CEFEPIME [Concomitant]
     Indication: EVIDENCE BASED TREATMENT
     Dosage: 1 GM, Q24H
     Route: 042
     Dates: start: 20090417, end: 20090428
  4. ALBUTEROL [Concomitant]
     Indication: ASTHMA
     Dosage: 4 PUFF, Q4H
     Dates: start: 20090417, end: 20090428
  5. FUROSEMIDE [Concomitant]
     Indication: FLUID OVERLOAD
     Dosage: 20 MG, Q24H
     Dates: start: 20090419, end: 20090428
  6. HEPARIN [Concomitant]
     Indication: THROMBOSIS PROPHYLAXIS
     Dosage: 5000 UNK, Q12H
     Dates: start: 20090422, end: 20090428
  7. METHADONE [Concomitant]
     Indication: PAIN
     Dosage: 10 MG, Q24H
     Route: 048
     Dates: start: 20090414, end: 20090428
  8. METHADONE [Concomitant]
     Indication: DEPENDENCE
  9. NICOTINE [Concomitant]
     Indication: SMOKING CESSATION THERAPY
     Dosage: 21 MG, Q24H
     Route: 062
     Dates: start: 20090328, end: 20090428

REACTIONS (1)
  - Endocarditis [Fatal]
